FAERS Safety Report 5615494-3 (Version None)
Quarter: 2008Q1

REPORT INFORMATION
  Report Type: 
  Country: None (occurrence: None)
  Receive Date: 20080206
  Receipt Date: 20080125
  Transmission Date: 20080703
  Serious: Yes (Hospitalization)
  Sender: FDA-Public Use
  Company Number: US-ELI_LILLY_AND_COMPANY-US200801005590

PATIENT
  Sex: Female

DRUGS (4)
  1. FORTEO [Suspect]
     Route: 058
     Dates: start: 20040101, end: 20060101
  2. FORTEO [Suspect]
     Route: 058
     Dates: start: 20070801
  3. NUTRILYTE [Concomitant]
  4. CALCIUM GLUCONATE [Concomitant]
     Dosage: 1200 MG, UNK

REACTIONS (4)
  - BONE DENSITY DECREASED [None]
  - BONE PAIN [None]
  - CARDIAC PACEMAKER INSERTION [None]
  - MUSCLE SPASMS [None]
